FAERS Safety Report 15397746 (Version 7)
Quarter: 2022Q3

REPORT INFORMATION
  Report Type: Report from Study
  Country: JP (occurrence: None)
  Receive Date: 20180918
  Receipt Date: 20220720
  Transmission Date: 20221027
  Serious: Yes (Other)
  Sender: FDA-Public Use
  Company Number: JP-ROCHE-2184079

PATIENT
  Age: 53 Year
  Sex: Female
  Weight: 50.3 kg

DRUGS (34)
  1. ATEZOLIZUMAB [Suspect]
     Active Substance: ATEZOLIZUMAB
     Indication: Ovarian cancer
     Dosage: MOST RECENT DOSE OF ATEZOLIZUMAB (ONCE PER 3 WEEKS): 17/AUG/2018
     Route: 042
     Dates: start: 20180426
  2. BEVACIZUMAB [Suspect]
     Active Substance: BEVACIZUMAB
     Indication: Ovarian cancer
     Dosage: ON 05/AUG/2018, SHE VISITED THE SITE FOR SCHEDULED STUDY TREATMENT OF CYCLE 7 DAY 1 AND RECEIVED BEV
     Route: 042
     Dates: start: 20180517
  3. PACLITAXEL [Suspect]
     Active Substance: PACLITAXEL
     Indication: Ovarian cancer
     Dosage: MOST RECENT DOSE OF PACLITAXEL (264 MG ONCE PER 3 WEEKS): 17/AUG/2018
     Route: 042
     Dates: start: 20180426
  4. CARBOPLATIN [Suspect]
     Active Substance: CARBOPLATIN
     Indication: Ovarian cancer
     Dosage: MOST RECENT DOSE OF CARBOPLATIN(488 MG ONCE PER 3 WEEKS): 17/AUG/2018
     Route: 042
     Dates: start: 20180426
  5. MAGNESIUM OXIDE [Concomitant]
     Active Substance: MAGNESIUM OXIDE
     Indication: Constipation
     Dates: start: 20180327
  6. LOXOPROFEN SODIUM [Concomitant]
     Active Substance: LOXOPROFEN SODIUM
     Indication: Migraine
     Dates: start: 20180426
  7. LOXOPROFEN SODIUM [Concomitant]
     Active Substance: LOXOPROFEN SODIUM
     Indication: Pharyngitis
     Dates: start: 20180916, end: 20180921
  8. LUNESTA [Concomitant]
     Active Substance: ESZOPICLONE
     Indication: Insomnia
     Dates: start: 20180323, end: 20180816
  9. METOCLOPRAMIDE HYDROCHLORIDE [Concomitant]
     Active Substance: METOCLOPRAMIDE HYDROCHLORIDE
     Indication: Nausea
     Dates: start: 20180427, end: 20180824
  10. METOCLOPRAMIDE HYDROCHLORIDE [Concomitant]
     Active Substance: METOCLOPRAMIDE HYDROCHLORIDE
     Dates: start: 20190602, end: 20190603
  11. FOSAPREPITANT [Concomitant]
     Active Substance: FOSAPREPITANT
     Indication: Premedication
     Route: 041
     Dates: start: 20180817, end: 20180817
  12. DEXCHLORPHENIRAMINE MALEATE [Concomitant]
     Active Substance: DEXCHLORPHENIRAMINE MALEATE
     Indication: Premedication
     Dates: start: 20180817, end: 20180817
  13. GASTER [Concomitant]
     Active Substance: FAMOTIDINE
     Indication: Premedication
     Dates: start: 20180817, end: 20180817
  14. ALOXI [Concomitant]
     Active Substance: PALONOSETRON HYDROCHLORIDE
     Indication: Premedication
     Route: 042
     Dates: start: 20180817, end: 20180817
  15. DEXAMETHASONE SODIUM PHOSPHATE [Concomitant]
     Active Substance: DEXAMETHASONE SODIUM PHOSPHATE
     Indication: Premedication
     Route: 042
     Dates: start: 20180817, end: 20180817
  16. AMOXICILLIN [Concomitant]
     Active Substance: AMOXICILLIN
     Indication: Pharyngitis
     Route: 048
     Dates: start: 20180918, end: 20180923
  17. POPIYODON [Concomitant]
     Indication: Pharyngitis
     Dates: start: 20180918, end: 20180928
  18. ACNE CARE SPOTS ESSENCE [Concomitant]
     Indication: Seborrhoeic dermatitis
     Dates: start: 20181026, end: 20191009
  19. KETOPROFEN [Concomitant]
     Active Substance: KETOPROFEN
     Indication: Arthralgia
     Dates: start: 20181107
  20. KETOPROFEN [Concomitant]
     Active Substance: KETOPROFEN
     Indication: Tendonitis
  21. FELNABION PAP [Concomitant]
     Indication: Arthralgia
     Dates: start: 20181128
  22. FELNABION PAP [Concomitant]
     Indication: Tendonitis
  23. MEPIVACAINE HYDROCHLORIDE [Concomitant]
     Active Substance: MEPIVACAINE HYDROCHLORIDE
     Indication: Tendonitis
     Dates: start: 20181207, end: 20181207
  24. MEPIVACAINE HYDROCHLORIDE [Concomitant]
     Active Substance: MEPIVACAINE HYDROCHLORIDE
     Indication: Tenosynovitis stenosans
     Dates: start: 20181221, end: 20181221
  25. MEPIVACAINE HYDROCHLORIDE [Concomitant]
     Active Substance: MEPIVACAINE HYDROCHLORIDE
     Indication: Tenosynovitis
     Dates: start: 20190905, end: 20210905
  26. RINDERON [Concomitant]
     Indication: Tendonitis
     Route: 061
     Dates: start: 20181207, end: 20181207
  27. TRIAMCINOLONE ACETONIDE [Concomitant]
     Active Substance: TRIAMCINOLONE ACETONIDE
     Indication: Tenosynovitis stenosans
     Route: 061
     Dates: start: 20181221, end: 20181221
  28. TRIAMCINOLONE ACETONIDE [Concomitant]
     Active Substance: TRIAMCINOLONE ACETONIDE
     Indication: Tenosynovitis
     Route: 061
     Dates: start: 20190905, end: 20190905
  29. LATANOPROST [Concomitant]
     Active Substance: LATANOPROST
     Indication: Glaucoma
     Route: 047
     Dates: start: 20190302
  30. OLOPATADINE HYDROCHLORIDE [Concomitant]
     Active Substance: OLOPATADINE HYDROCHLORIDE
     Indication: Urticaria
     Dates: start: 20190722, end: 20190723
  31. FEXOFENADINE HYDROCHLORIDE [Concomitant]
     Active Substance: FEXOFENADINE HYDROCHLORIDE
     Indication: Urticaria
     Dates: start: 20190722, end: 20190723
  32. CARBOPLATIN [Concomitant]
     Active Substance: CARBOPLATIN
     Indication: Neoplasm malignant
     Dates: start: 20210127, end: 20210428
  33. DOXYCYCLINE HYDROCHLORIDE [Concomitant]
     Active Substance: DOXYCYCLINE HYDROCHLORIDE
     Indication: Neoplasm malignant
     Dates: start: 20210127, end: 20210428
  34. OLAPARIB [Concomitant]
     Active Substance: OLAPARIB
     Indication: Neoplasm malignant
     Dates: start: 20210603

REACTIONS (1)
  - Retinal tear [Recovering/Resolving]

NARRATIVE: CASE EVENT DATE: 20180831
